FAERS Safety Report 25525745 (Version 4)
Quarter: 2025Q3

REPORT INFORMATION
  Report Type: Spontaneous
  Country: BR (occurrence: BR)
  Receive Date: 20250707
  Receipt Date: 20250721
  Transmission Date: 20251020
  Serious: Yes (Death, Hospitalization, Other)
  Sender: PURDUE
  Company Number: BR-NAPPMUNDI-GBR-2025-0126805

PATIENT
  Age: 73 Year
  Sex: Female

DRUGS (3)
  1. BUPRENORPHINE [Suspect]
     Active Substance: BUPRENORPHINE
     Indication: Cancer pain
     Route: 062
     Dates: start: 202506
  2. MORPHINE [Suspect]
     Active Substance: MORPHINE
     Indication: Product used for unknown indication
     Route: 065
  3. PURAN [Concomitant]
     Active Substance: LEVOTHYROXINE SODIUM
     Indication: Thyroid disorder
     Route: 065

REACTIONS (9)
  - Malignant neoplasm progression [Fatal]
  - Critical illness [Unknown]
  - Discoloured vomit [Unknown]
  - Feeling hot [Unknown]
  - Dizziness [Unknown]
  - Nausea [Unknown]
  - Adverse drug reaction [Unknown]
  - Dermatitis contact [Unknown]
  - Vomiting [Unknown]

NARRATIVE: CASE EVENT DATE: 20250601
